FAERS Safety Report 8213039-5 (Version None)
Quarter: 2012Q1

REPORT INFORMATION
  Report Type: 
  Country: None (occurrence: None)
  Receive Date: 20120315
  Receipt Date: 20120307
  Transmission Date: 20120608
  Serious: Yes (Hospitalization)
  Sender: FDA-Public Use
  Company Number: US-JNJFOC-20110204337

PATIENT
  Sex: Male

DRUGS (20)
  1. ABIRATERONE ACETATE [Suspect]
     Indication: PROSTATE CANCER METASTATIC
     Route: 048
     Dates: start: 20110219
  2. PREDNISONE TAB [Suspect]
     Route: 048
     Dates: start: 20110221
  3. ZOLADEX [Concomitant]
     Indication: PROSTATE CANCER
     Route: 058
     Dates: start: 20091023
  4. CALCIUM CARBONATE [Concomitant]
     Indication: DYSPEPSIA
     Route: 048
     Dates: start: 20100212
  5. ASPIRIN [Concomitant]
     Indication: CARDIOVASCULAR EVENT PROPHYLAXIS
     Route: 048
     Dates: start: 19970601
  6. OSCAL 500 [Concomitant]
     Indication: MEDICAL DIET
     Route: 048
     Dates: start: 20041109
  7. ABIRATERONE ACETATE [Suspect]
     Route: 048
     Dates: start: 20091023, end: 20110211
  8. VITAMIN [Concomitant]
     Indication: MEDICAL DIET
     Route: 048
     Dates: start: 19990601
  9. VITAMIN D [Concomitant]
     Indication: MEDICAL DIET
     Route: 065
     Dates: start: 20091006
  10. ZOLADEX [Concomitant]
     Indication: HORMONE THERAPY
     Route: 065
     Dates: start: 19990517
  11. IBUPROFEN (ADVIL) [Concomitant]
     Indication: ARTHRALGIA
     Route: 048
     Dates: start: 20110114
  12. ABIRATERONE ACETATE [Suspect]
     Route: 048
     Dates: start: 20110214, end: 20110218
  13. PREDNISONE TAB [Suspect]
     Indication: PROSTATE CANCER METASTATIC
     Route: 048
     Dates: start: 20091023, end: 20110218
  14. PREVACID [Concomitant]
     Indication: GASTROOESOPHAGEAL REFLUX DISEASE
     Route: 048
     Dates: start: 19960601
  15. PEPCID AC [Concomitant]
     Indication: DYSPEPSIA
     Route: 048
     Dates: start: 20091001
  16. COLACE [Concomitant]
     Indication: CONSTIPATION
     Route: 048
     Dates: start: 20091106
  17. DOXAZOSIN MESYLATE [Concomitant]
     Indication: POLLAKIURIA
     Route: 048
     Dates: start: 20100702
  18. CARDURA [Concomitant]
     Indication: POLLAKIURIA
     Route: 048
     Dates: start: 19940601
  19. ZOMETA [Concomitant]
     Indication: PROSTATE CANCER
     Route: 042
     Dates: start: 20091023
  20. CENTRUM MULTIVITAMINS [Concomitant]
     Indication: MEDICAL DIET
     Route: 048
     Dates: start: 19970601

REACTIONS (2)
  - THROMBOSIS [None]
  - STRESS FRACTURE [None]
